FAERS Safety Report 4362710-4 (Version None)
Quarter: 2004Q2

REPORT INFORMATION
  Report Type: 
  Country: None (occurrence: None)
  Receive Date: 20040518
  Receipt Date: 20040430
  Transmission Date: 20050107
  Serious: Yes (Death)
  Sender: FDA-Public Use
  Company Number: 0410003

PATIENT
  Sex: Female
  Weight: 0.4536 kg

DRUGS (8)
  1. ORFADIN [Suspect]
     Indication: METABOLIC DISORDER
     Dosage: 1 MILLIGRAM TWICE DAILY ORAL
     Route: 048
     Dates: start: 20031203, end: 20040108
  2. FRESH FROZEN PLASMA [Concomitant]
  3. PLATELETS [Concomitant]
  4. AMINO ACID SOLUTION [Concomitant]
  5. DOPAMINE HCL [Concomitant]
  6. VASOPRESSION DRIP [Concomitant]
  7. LASIX DRIP [Concomitant]
  8. PASTOR VII PREPARATION [Concomitant]

REACTIONS (7)
  - COAGULOPATHY [None]
  - FLUID OVERLOAD [None]
  - HEPATORENAL SYNDROME [None]
  - MULTI-ORGAN FAILURE [None]
  - NEONATAL HYPOTENSION [None]
  - NEONATAL RESPIRATORY FAILURE [None]
  - SEPSIS [None]
